FAERS Safety Report 25197078 (Version 1)
Quarter: 2025Q2

REPORT INFORMATION
  Report Type: Spontaneous
  Country: US (occurrence: US)
  Receive Date: 20250415
  Receipt Date: 20250415
  Transmission Date: 20250716
  Serious: No
  Sender: AMGEN
  Company Number: US-AMGEN-USASP2025069168

PATIENT
  Age: 68 Year
  Sex: Female
  Weight: 58.503 kg

DRUGS (3)
  1. EVENITY [Suspect]
     Active Substance: ROMOSOZUMAB-AQQG
     Indication: Osteoporosis
     Dosage: 210 MILLIGRAM, QMO
     Route: 058
     Dates: start: 20250129
  2. CALCIUM [Concomitant]
     Active Substance: CALCIUM
     Route: 065
  3. THYROID [Concomitant]
     Active Substance: LEVOTHYROXINE\LIOTHYRONINE
     Route: 065

REACTIONS (6)
  - Injection site erythema [Recovered/Resolved]
  - Injection site swelling [Recovered/Resolved]
  - Lethargy [Unknown]
  - Depression [Unknown]
  - Injection site pain [Unknown]
  - Tooth disorder [Unknown]

NARRATIVE: CASE EVENT DATE: 20250101
